FAERS Safety Report 6207134-X (Version None)
Quarter: 2009Q2

REPORT INFORMATION
  Report Type: 
  Country: None (occurrence: None)
  Receive Date: 20090528
  Receipt Date: 20090520
  Transmission Date: 20091009
  Serious: Yes (Hospitalization, Other)
  Sender: FDA-Public Use
  Company Number: BR-ABBOTT-09P-020-0574821-00

PATIENT
  Sex: Female

DRUGS (5)
  1. HUMIRA [Suspect]
     Indication: RHEUMATOID ARTHRITIS
     Route: 058
     Dates: start: 20080801, end: 20090305
  2. HUMIRA [Suspect]
     Route: 058
     Dates: start: 20090402
  3. METHOTREXATE [Suspect]
     Indication: RHEUMATOID ARTHRITIS
  4. DICLOFENAC SODIUM [Concomitant]
     Indication: RHEUMATOID ARTHRITIS
  5. IBUPROFEN [Concomitant]
     Indication: RHEUMATOID ARTHRITIS

REACTIONS (2)
  - IMPLANT SITE THROMBOSIS [None]
  - POSTOPERATIVE WOUND INFECTION [None]
